FAERS Safety Report 9175599 (Version 1)
Quarter: 2013Q1

REPORT INFORMATION
  Report Type: Spontaneous
  Country: US (occurrence: US)
  Receive Date: 20130320
  Receipt Date: 20130320
  Transmission Date: 20140127
  Serious: No
  Sender: FDA-Public Use
  Company Number: US-BAYER-2013-032531

PATIENT
  Sex: Female
  Weight: 95 kg

DRUGS (3)
  1. BETASERON [Suspect]
     Indication: MULTIPLE SCLEROSIS
     Dosage: 0.3 MG, QOD
     Route: 058
     Dates: start: 1994
  2. GLUCOSAMINE [GLUCOSAMINE] [Concomitant]
     Dosage: 500 MG, UNK
  3. FISH OIL [Concomitant]

REACTIONS (2)
  - Injection site pain [Unknown]
  - Injection site erythema [Not Recovered/Not Resolved]
